FAERS Safety Report 23883408 (Version 1)
Quarter: 2024Q2

REPORT INFORMATION
  Report Type: Other
  Country: AU (occurrence: AU)
  Receive Date: 20240522
  Receipt Date: 20240522
  Transmission Date: 20240716
  Serious: Yes (Other)
  Sender: FDA-Public Use
  Company Number: AU-Appco Pharma LLC-2157288

PATIENT
  Age: 86 Year
  Sex: Female

DRUGS (1)
  1. CLINDAMYCIN PALMITATE HYDROCHLORIDE [Suspect]
     Active Substance: CLINDAMYCIN PALMITATE HYDROCHLORIDE
     Indication: Osteomyelitis
     Route: 065

REACTIONS (1)
  - Treatment failure [Unknown]
